FAERS Safety Report 4626054-5 (Version None)
Quarter: 2005Q2

REPORT INFORMATION
  Report Type: 
  Country: None (occurrence: None)
  Receive Date: 20050404
  Receipt Date: 20040215
  Transmission Date: 20051028
  Serious: Yes (Hospitalization, Other)
  Sender: FDA-Public Use
  Company Number: JP-MERCK-0501USA03629

PATIENT
  Age: 82 Year
  Sex: Female

DRUGS (7)
  1. ZOCOR [Suspect]
     Indication: HYPERLIPIDAEMIA
     Route: 048
     Dates: start: 19991217, end: 20041028
  2. BASEN [Suspect]
     Route: 048
     Dates: start: 20040709, end: 20041028
  3. MUCODYNE [Concomitant]
     Route: 048
     Dates: start: 19991210
  4. ADONA [Concomitant]
     Route: 048
     Dates: start: 19991210
  5. CONIEL [Suspect]
     Route: 048
     Dates: start: 20020809, end: 20050128
  6. SERRAPEPTASE [Concomitant]
     Route: 048
     Dates: start: 19991210
  7. TROXIPIDE [Concomitant]
     Route: 048
     Dates: start: 19991210

REACTIONS (9)
  - BODY TEMPERATURE DECREASED [None]
  - CIRCADIAN RHYTHM SLEEP DISORDER [None]
  - DEPRESSED LEVEL OF CONSCIOUSNESS [None]
  - HYPOTHYROIDISM [None]
  - LIVER DISORDER [None]
  - MUSCLE DISORDER [None]
  - PAIN IN EXTREMITY [None]
  - RHABDOMYOLYSIS [None]
  - SHOCK [None]
